FAERS Safety Report 9795493 (Version 2)
Quarter: 2015Q3

REPORT INFORMATION
  Report Type: Report from Study
  Country: US (occurrence: US)
  Receive Date: 20140103
  Receipt Date: 20150921
  Transmission Date: 20151125
  Serious: Yes (Hospitalization)
  Sender: FDA-Public Use
  Company Number: US-ROCHE-1328121

PATIENT
  Age: 78 Year
  Sex: Male

DRUGS (1)
  1. LUCENTIS [Suspect]
     Active Substance: RANIBIZUMAB
     Indication: MACULAR DEGENERATION
     Dosage: PERIODICALLY PRN BASIS
     Route: 050

REACTIONS (3)
  - Pneumonia [Recovered/Resolved]
  - Leukaemia [Recovered/Resolved]
  - Hearing impaired [Unknown]

NARRATIVE: CASE EVENT DATE: 20130731
